FAERS Safety Report 10047999 (Version 2)
Quarter: 2014Q4

REPORT INFORMATION
  Report Type: Spontaneous
  Country: US (occurrence: None)
  Receive Date: 20140327
  Receipt Date: 20141229
  Transmission Date: 20150528
  Serious: Yes (Other)
  Sender: FDA-Public Use
  Company Number: 2014-US-003198

PATIENT
  Age: 71 Year
  Sex: Female

DRUGS (1)
  1. XYREM [Suspect]
     Active Substance: SODIUM OXYBATE
     Indication: NARCOLEPSY
     Route: 048
     Dates: start: 200606, end: 2013

REACTIONS (2)
  - Knee arthroplasty [None]
  - Muscle spasms [None]

NARRATIVE: CASE EVENT DATE: 201309
